FAERS Safety Report 7584293-8 (Version None)
Quarter: 2011Q2

REPORT INFORMATION
  Report Type: 
  Country: None (occurrence: None)
  Receive Date: 20110630
  Receipt Date: 20110620
  Transmission Date: 20111010
  Serious: Yes (Hospitalization)
  Sender: FDA-Public Use
  Company Number: PHHY2011IR56689

PATIENT
  Age: 6 Year
  Sex: Male

DRUGS (1)
  1. PREDNISOLONE [Suspect]
     Indication: HENOCH-SCHONLEIN PURPURA
     Dosage: 2MG/KG/DAY FOR EIGHT WEEKS

REACTIONS (6)
  - RED BLOOD CELL SEDIMENTATION RATE INCREASED [None]
  - DRUG DEPENDENCE [None]
  - DRUG INEFFECTIVE [None]
  - HAEMOGLOBIN DECREASED [None]
  - C-REACTIVE PROTEIN INCREASED [None]
  - CONDITION AGGRAVATED [None]
